FAERS Safety Report 24300169 (Version 1)
Quarter: 2024Q3

REPORT INFORMATION
  Report Type: Report from Study
  Country: BE (occurrence: BE)
  Receive Date: 20240909
  Receipt Date: 20240909
  Transmission Date: 20241016
  Serious: Yes (Other)
  Sender: ABBVIE
  Company Number: BE-JNJFOC-20170210522

PATIENT
  Age: 66 Year
  Sex: Male

DRUGS (2)
  1. IBRUTINIB [Suspect]
     Active Substance: IBRUTINIB
     Indication: Chronic lymphocytic leukaemia
     Route: 048
     Dates: start: 20150928, end: 20200202
  2. IBRUTINIB [Suspect]
     Active Substance: IBRUTINIB
     Indication: Chronic lymphocytic leukaemia
     Route: 048
     Dates: start: 20200203, end: 20200308

REACTIONS (24)
  - Acute kidney injury [Recovered/Resolved]
  - Fatigue [Recovered/Resolved]
  - Rash pustular [Recovered/Resolved]
  - Lymphocytosis [Recovered/Resolved]
  - Contusion [Not Recovered/Not Resolved]
  - Rash [Recovered/Resolved]
  - Oedema peripheral [Recovered/Resolved]
  - Petechiae [Recovered/Resolved]
  - Hypertension [Recovered/Resolved]
  - Bronchitis [Recovered/Resolved]
  - Muscle spasms [Not Recovered/Not Resolved]
  - Hyperuricaemia [Recovered/Resolved]
  - Dyspepsia [Recovered/Resolved]
  - Cough [Recovered/Resolved]
  - Actinic keratosis [Recovered/Resolved]
  - Allergy to arthropod bite [Recovered/Resolved]
  - Epistaxis [Recovered/Resolved]
  - Nail ridging [Not Recovered/Not Resolved]
  - Muscle strain [Recovered/Resolved]
  - Cervicobrachial syndrome [Recovered/Resolved]
  - Oral herpes [Recovered/Resolved]
  - Chills [Recovered/Resolved]
  - Abdominal pain upper [Not Recovered/Not Resolved]
  - Skin atrophy [Not Recovered/Not Resolved]

NARRATIVE: CASE EVENT DATE: 20151026
